FAERS Safety Report 10080466 (Version 3)
Quarter: 2014Q2

REPORT INFORMATION
  Report Type: Report from Study
  Country: DE (occurrence: DE)
  Receive Date: 20140416
  Receipt Date: 20140424
  Transmission Date: 20141212
  Serious: Yes (Hospitalization)
  Sender: FDA-Public Use
  Company Number: DE-PFIZER INC-2014041091

PATIENT
  Age: 55 Year
  Sex: Female
  Weight: 86.3 kg

DRUGS (4)
  1. TOFACITINIB CITRATE [Suspect]
     Indication: RHEUMATOID ARTHRITIS
     Dosage: 10 MG, 2X/DAY
     Route: 048
     Dates: start: 20101116, end: 20131231
  2. TOFACITINIB CITRATE [Suspect]
     Dosage: UNK
     Dates: start: 20140126, end: 20140302
  3. LEFLUNOMIDE [Suspect]
     Indication: RHEUMATOID ARTHRITIS
     Dosage: 20 MG, 1X/DAY
     Route: 048
     Dates: start: 20120215, end: 20131231
  4. TRAMAL [Concomitant]
     Indication: RHEUMATOID ARTHRITIS
     Dosage: 50 MG, 1X/DAY
     Route: 048
     Dates: start: 20120202, end: 20140105

REACTIONS (2)
  - Postoperative wound infection [Recovered/Resolved]
  - Osteoarthritis [Unknown]
